FAERS Safety Report 17826983 (Version 7)
Quarter: 2020Q3

REPORT INFORMATION
  Report Type: Spontaneous
  Country: PL (occurrence: PL)
  Receive Date: 20200526
  Receipt Date: 20200811
  Transmission Date: 20201102
  Serious: Yes (Death, Other)
  Sender: FDA-Public Use
  Company Number: NVSC2020PL144231

PATIENT
  Age: 68 Year
  Sex: Male

DRUGS (16)
  1. CLOPIDOGREL [Suspect]
     Active Substance: CLOPIDOGREL BISULFATE
     Indication: AORTIC DISSECTION
     Dosage: 600 MG, ONCE/SINGLE, SINGLE LOADING DOSE
     Route: 065
     Dates: start: 20160812, end: 201608
  2. CLOPIDOGREL [Suspect]
     Active Substance: CLOPIDOGREL BISULFATE
     Indication: ACUTE CORONARY SYNDROME
     Dosage: 600 MG
     Route: 065
     Dates: start: 201608, end: 201608
  3. BISOPROLOL [Suspect]
     Active Substance: BISOPROLOL
     Indication: HYPERTENSION
     Dosage: UNK
     Route: 065
  4. BERODUAL [Suspect]
     Active Substance: FENOTEROL HYDROBROMIDE\IPRATROPIUM BROMIDE
     Indication: CHRONIC OBSTRUCTIVE PULMONARY DISEASE
     Dosage: UNK
     Route: 055
  5. DABIGATRAN [Suspect]
     Active Substance: DABIGATRAN
     Indication: ATRIAL FIBRILLATION
     Dosage: 110 MG, BID
     Route: 065
     Dates: start: 201601
  6. FORMOTEROL [Suspect]
     Active Substance: FORMOTEROL
     Indication: CHRONIC OBSTRUCTIVE PULMONARY DISEASE
     Dosage: UNK
     Route: 055
  7. IPRATROPIUM BROMIDE. [Suspect]
     Active Substance: IPRATROPIUM BROMIDE
     Indication: CHRONIC OBSTRUCTIVE PULMONARY DISEASE
     Dosage: UNK
     Route: 065
  8. LACIDIPINE [Suspect]
     Active Substance: LACIDIPINE
     Indication: HYPERTENSION
     Dosage: UNK
     Route: 065
  9. RIVAROXABAN [Suspect]
     Active Substance: RIVAROXABAN
     Indication: ATRIAL FIBRILLATION
     Dosage: 20 MILLIGRAM DAILY;
     Route: 065
     Dates: start: 201510
  10. DABIGATRAN [Suspect]
     Active Substance: DABIGATRAN
     Dosage: THE PATIENT WAS PRESCRIBED DOSE OF 2X 150 MG/DAY. ON 12/08/2016 HE TOOK EARLIER HIS MORNING DOSE.
     Route: 065
     Dates: start: 201603
  11. NOREPINEPHRINE. [Suspect]
     Active Substance: NOREPINEPHRINE
     Indication: POST PROCEDURAL HAEMORRHAGE
     Dosage: INCREASING DOSES
     Route: 042
  12. PRADAXA [Suspect]
     Active Substance: DABIGATRAN ETEXILATE MESYLATE
     Indication: ATRIAL FIBRILLATION
     Dosage: 110 MG, QD
     Route: 065
     Dates: start: 201601
  13. PRAXBIND [Suspect]
     Active Substance: IDARUCIZUMAB
     Indication: PRODUCT USED FOR UNKNOWN INDICATION
     Dosage: 2.5 MG, BID
     Route: 065
     Dates: start: 2016
  14. PRAXBIND [Suspect]
     Active Substance: IDARUCIZUMAB
     Dosage: 3 G, Q12H
     Route: 065
  15. LEVOTHYROXINE. [Suspect]
     Active Substance: LEVOTHYROXINE
     Indication: HYPOTHYROIDISM
     Dosage: UNK
     Route: 065
  16. EPINEPHRINE. [Suspect]
     Active Substance: EPINEPHRINE
     Indication: POST PROCEDURAL HAEMORRHAGE
     Dosage: INCREASING DOSES
     Route: 042

REACTIONS (13)
  - Shock haemorrhagic [Fatal]
  - Aortic dissection [Fatal]
  - Epistaxis [Fatal]
  - Procedural haemorrhage [Fatal]
  - Anaemia [Fatal]
  - Shock [Fatal]
  - Acute coronary syndrome [Fatal]
  - Left ventricular hypertrophy [Fatal]
  - Pericardial effusion [Fatal]
  - Post procedural haemorrhage [Fatal]
  - Product use in unapproved indication [Fatal]
  - Coronary artery disease [Unknown]
  - Chest pain [Fatal]

NARRATIVE: CASE EVENT DATE: 201603
